FAERS Safety Report 5971749-4 (Version None)
Quarter: 2008Q4

REPORT INFORMATION
  Report Type: 
  Country: None (occurrence: None)
  Receive Date: 20081125
  Receipt Date: 20081114
  Transmission Date: 20090506
  Serious: Yes (Hospitalization)
  Sender: FDA-Public Use
  Company Number: 231897K08USA

PATIENT
  Age: 63 Year
  Sex: Female

DRUGS (12)
  1. REBIF [Suspect]
     Indication: MULTIPLE SCLEROSIS
     Dosage: 44 MCG, 3 IN 1 WEEKS, SUBCUTANEOUS
     Route: 058
     Dates: start: 20071127
  2. MELOXICAM [Concomitant]
  3. OMEDA (ALL OTHER THERAPEUTIC PRODUCTS) [Concomitant]
  4. SIMVASTATIN [Concomitant]
  5. EFFEXOR [Concomitant]
  6. FENTANYL [Concomitant]
  7. ASPIRIN [Concomitant]
  8. AMLODIPINE [Concomitant]
  9. ALBUTEROL INHALER (SALBUTAMOL /00139501/) [Concomitant]
  10. AMITRIPTYLINE HCL [Concomitant]
  11. AMANTADINE HCL [Concomitant]
  12. GABAPENTIN [Concomitant]

REACTIONS (1)
  - PNEUMONIA [None]
